FAERS Safety Report 6527233-2 (Version None)
Quarter: 2010Q1

REPORT INFORMATION
  Report Type: 
  Country: None (occurrence: None)
  Receive Date: 20100104
  Receipt Date: 20100104
  Transmission Date: 20100710
  Serious: Yes (Other)
  Sender: FDA-Public Use
  Company Number: None

PATIENT
  Age: 56 Year
  Sex: Female
  Weight: 70.3075 kg

DRUGS (1)
  1. LUNESTA [Suspect]
     Indication: INSOMNIA
     Dosage: 1 TABLET AT BEDTIME DAILY PO
     Route: 048
     Dates: start: 20090601, end: 20091116

REACTIONS (4)
  - DYSKINESIA [None]
  - GRIMACING [None]
  - INFREQUENT BOWEL MOVEMENTS [None]
  - MICTURITION FREQUENCY DECREASED [None]
